FAERS Safety Report 5644237-2 (Version None)
Quarter: 2008Q1

REPORT INFORMATION
  Report Type: 
  Country: None (occurrence: None)
  Receive Date: 20080227
  Receipt Date: 20080227
  Transmission Date: 20080703
  Serious: Yes (Life-Threatening)
  Sender: FDA-Public Use
  Company Number: None

PATIENT
  Age: 26 Year
  Sex: Female
  Weight: 63.5036 kg

DRUGS (1)
  1. TRAMADOL HCL [Suspect]
     Indication: ABDOMINAL PAIN
     Dosage: 100MG ONCE ONLY PO ONE DOSE
     Route: 048
     Dates: start: 20080225, end: 20080225

REACTIONS (3)
  - CONVULSION [None]
  - POSTICTAL STATE [None]
  - TREMOR [None]
